FAERS Safety Report 21860576 (Version 1)
Quarter: 2023Q1

REPORT INFORMATION
  Report Type: Spontaneous
  Country: US (occurrence: None)
  Receive Date: 20230113
  Receipt Date: 20230113
  Transmission Date: 20230418
  Serious: Yes (Death, Hospitalization)
  Sender: FDA-Public Use
  Company Number: None

PATIENT
  Sex: Male
  Weight: 96.1 kg

DRUGS (26)
  1. EPCLUSA [Suspect]
     Active Substance: SOFOSBUVIR\VELPATASVIR
     Indication: Hepatitis C
     Dosage: 400-100 MG TABLE
     Route: 048
     Dates: start: 20181026, end: 20190118
  2. COLACE [Concomitant]
     Active Substance: DOCUSATE SODIUM
  3. NYSTATIN [Concomitant]
     Active Substance: NYSTATIN
  4. SENOKOT [Concomitant]
     Active Substance: SENNOSIDES
  5. SEPTRA [Concomitant]
     Active Substance: SULFAMETHOXAZOLE\TRIMETHOPRIM
  6. AMITRIPTYLINE [Concomitant]
     Active Substance: AMITRIPTYLINE
  7. TYLENOL [Concomitant]
     Active Substance: ACETAMINOPHEN
  8. ZOPICLONE [Concomitant]
     Active Substance: ZOPICLONE
  9. LIPITOR [Concomitant]
     Active Substance: ATORVASTATIN CALCIUM
  10. MAGNESIUM OXIDE [Concomitant]
     Active Substance: MAGNESIUM OXIDE
  11. MYFORTIC [Concomitant]
     Active Substance: MYCOPHENOLATE SODIUM
  12. NEORAL [Concomitant]
     Active Substance: CYCLOSPORINE
  13. CIPROFLOXACIN [Concomitant]
     Active Substance: CIPROFLOXACIN
  14. BISOPROLOL [Concomitant]
     Active Substance: BISOPROLOL
  15. CALCIUM CARBONATE [Concomitant]
     Active Substance: CALCIUM CARBONATE
  16. VITAMIN D [Concomitant]
     Active Substance: VITAMIN D NOS
  17. FERROUS FUMARATE [Concomitant]
     Active Substance: FERROUS FUMARATE
  18. ASPIRIN [Concomitant]
     Active Substance: ASPIRIN
  19. ALENDRONATE [Concomitant]
     Active Substance: ALENDRONATE SODIUM
  20. LASIX [Concomitant]
     Active Substance: FUROSEMIDE
  21. GABAPENTIN [Concomitant]
     Active Substance: GABAPENTIN
  22. PREDNISONE [Concomitant]
     Active Substance: PREDNISONE
  23. VALCYTE [Concomitant]
     Active Substance: VALGANCICLOVIR HYDROCHLORIDE
  24. LANTUS [Concomitant]
     Active Substance: INSULIN GLARGINE
  25. HUMALOG [Concomitant]
     Active Substance: INSULIN LISPRO
  26. HYDROMORPHONE [Concomitant]
     Active Substance: HYDROMORPHONE

REACTIONS (4)
  - Complications of transplanted lung [None]
  - Bronchopulmonary aspergillosis [None]
  - Pneumonia [None]
  - Respiratory failure [None]

NARRATIVE: CASE EVENT DATE: 20181219
